FAERS Safety Report 4885511-7 (Version None)
Quarter: 2006Q1

REPORT INFORMATION
  Report Type: 
  Country: None (occurrence: None)
  Receive Date: 20060119
  Receipt Date: 20050325
  Transmission Date: 20060701
  Serious: Yes (Hospitalization, Disabling, Other)
  Sender: FDA-Public Use
  Company Number: US-MERCK-0503USA05022

PATIENT
  Age: 45 Year
  Sex: Female
  Weight: 120 kg

DRUGS (37)
  1. VIOXX [Suspect]
     Indication: BACK PAIN
     Route: 048
     Dates: start: 20010501, end: 20031001
  2. VIOXX [Suspect]
     Route: 048
     Dates: start: 20010501, end: 20031001
  3. VIOXX [Suspect]
     Indication: INTERVERTEBRAL DISC DEGENERATION
     Route: 048
     Dates: start: 20010501, end: 20031001
  4. VIOXX [Suspect]
     Route: 048
     Dates: start: 20010501, end: 20031001
  5. PREVACID [Concomitant]
     Route: 048
  6. LOTENSIN [Concomitant]
     Route: 048
  7. LIPITOR [Concomitant]
     Route: 048
  8. TYLENOL (CAPLET) [Concomitant]
     Route: 065
  9. ALLEGRA [Concomitant]
     Route: 065
  10. PROZAC [Concomitant]
     Route: 065
  11. PENICILLIN VK [Concomitant]
     Route: 065
  12. ATENOLOL [Concomitant]
     Route: 065
  13. VANCENASE [Concomitant]
     Route: 065
  14. ALBUTEROL [Concomitant]
     Route: 065
  15. NORCO [Concomitant]
     Route: 065
  16. ASPIRIN [Concomitant]
     Route: 065
  17. ELAVIL [Concomitant]
     Route: 065
  18. EFFEXOR [Concomitant]
     Route: 065
  19. TRAZODONE HYDROCHLORIDE [Concomitant]
     Route: 065
  20. PROTONIX [Concomitant]
     Route: 065
  21. Z-PAK [Concomitant]
     Route: 065
  22. DIFLUCAN [Concomitant]
     Route: 065
  23. TEQUIN [Concomitant]
     Route: 065
  24. ATROVENT [Concomitant]
     Route: 065
  25. AMOXICILLIN [Concomitant]
     Route: 065
  26. SINGULAIR [Concomitant]
     Route: 065
  27. NICODERM [Concomitant]
     Route: 065
  28. ULTRAM [Concomitant]
     Route: 065
  29. NORTRIPTYLINE [Concomitant]
     Route: 065
  30. NEURONTIN [Concomitant]
     Route: 065
  31. VICODIN [Concomitant]
     Route: 065
  32. ZANTAC [Concomitant]
     Route: 065
  33. PAMELOR [Concomitant]
     Route: 065
  34. CLINDAMYCIN [Concomitant]
     Route: 065
  35. PLAVIX [Concomitant]
     Route: 065
  36. CARISOPRODOL [Concomitant]
     Route: 065
  37. GLUCOPHAGE [Concomitant]
     Route: 065

REACTIONS (12)
  - ASTHENIA [None]
  - BACK PAIN [None]
  - BLOOD PRESSURE DIASTOLIC INCREASED [None]
  - CEREBROVASCULAR ACCIDENT [None]
  - DIABETIC NEUROPATHY [None]
  - GASTROOESOPHAGEAL REFLUX DISEASE [None]
  - HEADACHE [None]
  - INJURY [None]
  - INTERVERTEBRAL DISC DEGENERATION [None]
  - INTERVERTEBRAL DISC PROTRUSION [None]
  - PNEUMONIA [None]
  - RADICULOPATHY [None]
